FAERS Safety Report 5798213-X (Version None)
Quarter: 2008Q3

REPORT INFORMATION
  Report Type: 
  Country: None (occurrence: None)
  Receive Date: 20080702
  Receipt Date: 20080630
  Transmission Date: 20090109
  Serious: Yes (Death)
  Sender: FDA-Public Use
  Company Number: B0526450A

PATIENT
  Age: 1 Day
  Sex: Female
  Weight: 2.2 kg

DRUGS (7)
  1. ZIDOVUDINE [Suspect]
     Dosage: 12MG TWICE PER DAY
     Route: 048
     Dates: start: 20080613, end: 20080613
  2. LAMIVUDINE [Suspect]
     Dosage: 6MG TWICE PER DAY
     Route: 048
     Dates: start: 20080613, end: 20080613
  3. NELFINAVIR [Suspect]
     Dosage: 200MG TWICE PER DAY
     Route: 048
     Dates: start: 20080613, end: 20080613
  4. CHLOROMYCETIN [Concomitant]
     Dates: start: 20080613, end: 20080613
  5. VITAMIN K TAB [Concomitant]
     Dates: start: 20080613, end: 20080613
  6. TICE BCG [Concomitant]
     Dates: start: 20080613, end: 20080613
  7. POLIO VACCINE [Concomitant]
     Dates: start: 20080613, end: 20080613

REACTIONS (8)
  - ALANINE AMINOTRANSFERASE INCREASED [None]
  - ASPARTATE AMINOTRANSFERASE INCREASED [None]
  - HAEMOGLOBIN DECREASED [None]
  - HEPATOMEGALY [None]
  - HYPOREFLEXIA [None]
  - LYMPHOCYTOSIS [None]
  - MONOCYTOSIS [None]
  - SUDDEN INFANT DEATH SYNDROME [None]
